FAERS Safety Report 5342619-X (Version None)
Quarter: 2007Q2

REPORT INFORMATION
  Report Type: 
  Country: None (occurrence: None)
  Receive Date: 20070601
  Receipt Date: 20070531
  Transmission Date: 20071010
  Serious: Yes (Hospitalization)
  Sender: FDA-Public Use
  Company Number: TR-ROXANE LABORATORIES, INC-2007-DE-03231GD

PATIENT
  Age: 46 Year
  Sex: Female

DRUGS (1)
  1. SERTRALINE [Suspect]
     Indication: ANTIDEPRESSANT THERAPY

REACTIONS (3)
  - DRY EYE [None]
  - MYDRIASIS [None]
  - VISUAL DISTURBANCE [None]
